FAERS Safety Report 7225768-0 (Version None)
Quarter: 2011Q1

REPORT INFORMATION
  Report Type: 
  Country: None (occurrence: None)
  Receive Date: 20110110
  Receipt Date: 20110110
  Transmission Date: 20110831
  Serious: Yes (Other)
  Sender: FDA-Public Use
  Company Number: None

PATIENT
  Age: 53 Year
  Sex: Male
  Weight: 115.6672 kg

DRUGS (2)
  1. NALTREXONE 3.0MG'S PARK-IRMAT COMPOUNDING [Suspect]
     Dosage: 1 PILL BEFORE BED TIME 1 A DAY PO
     Route: 048
     Dates: start: 20080601, end: 20110105
  2. LDN [Concomitant]

REACTIONS (4)
  - ABDOMINAL PAIN UPPER [None]
  - FAECAL INCONTINENCE [None]
  - MALAISE [None]
  - DIARRHOEA [None]
